FAERS Safety Report 21692239 (Version 1)
Quarter: 2022Q4

REPORT INFORMATION
  Report Type: Spontaneous
  Country: PT (occurrence: PT)
  Receive Date: 20221207
  Receipt Date: 20221207
  Transmission Date: 20230113
  Serious: Yes (Other)
  Sender: FDA-Public Use
  Company Number: PT-PFIZER INC-202201339118

PATIENT
  Age: 74 Year
  Sex: Female

DRUGS (4)
  1. DAPTOMYCIN [Suspect]
     Active Substance: DAPTOMYCIN
     Indication: Endocarditis
     Dosage: UNK
  2. DAPTOMYCIN [Suspect]
     Active Substance: DAPTOMYCIN
     Dosage: UNK
  3. MEROPENEM [Concomitant]
     Active Substance: MEROPENEM
     Indication: Superinfection bacterial
     Dosage: UNK
  4. LINEZOLID [Concomitant]
     Active Substance: LINEZOLID
     Indication: Superinfection bacterial
     Dosage: UNK

REACTIONS (2)
  - Nephrogenic diabetes insipidus [Recovering/Resolving]
  - Toxicity to various agents [Recovering/Resolving]
